FAERS Safety Report 8831207 (Version 1)
Quarter: 2012Q4

REPORT INFORMATION
  Report Type: 
  Country: US (occurrence: US)
  Receive Date: 20121008
  Receipt Date: 20121008
  Transmission Date: 20130627
  Serious: No
  Sender: FDA-Public Use
  Company Number: US-VERTEX PHARMACEUTICAL INC.-2012-022076

PATIENT
  Sex: Male

DRUGS (3)
  1. INCIVEK [Suspect]
     Indication: HEPATITIS C
     Route: 048
  2. PEGASYS [Suspect]
     Indication: HEPATITIS C
  3. RIBAVIRIN [Suspect]
     Indication: HEPATITIS C

REACTIONS (12)
  - Dyspnoea [Recovered/Resolved]
  - Anxiety [Unknown]
  - Micturition urgency [Recovered/Resolved]
  - Mood swings [Recovered/Resolved]
  - Feeling of body temperature change [Unknown]
  - Feeling abnormal [Unknown]
  - Chills [Unknown]
  - Hot flush [Unknown]
  - Asthenia [Recovered/Resolved]
  - Rash macular [Unknown]
  - Pruritus [Unknown]
  - Nausea [Recovered/Resolved]
